FAERS Safety Report 15413168 (Version 2)
Quarter: 2018Q3

REPORT INFORMATION
  Report Type: Spontaneous
  Country: JP (occurrence: JP)
  Receive Date: 20180921
  Receipt Date: 20180926
  Transmission Date: 20181010
  Serious: Yes (Hospitalization, Other)
  Sender: FDA-Public Use
  Company Number: JP-009507513-1809JPN000975J

PATIENT
  Age: 9 Decade
  Sex: Male

DRUGS (1)
  1. KEYTRUDA [Suspect]
     Active Substance: PEMBROLIZUMAB
     Indication: LUNG NEOPLASM MALIGNANT
     Dosage: UNK
     Route: 041
     Dates: start: 201709, end: 201801

REACTIONS (4)
  - Adrenalitis [Unknown]
  - Thyroiditis [Unknown]
  - Hyperthyroidism [Unknown]
  - Hypophysitis [Unknown]

NARRATIVE: CASE EVENT DATE: 201801
